FAERS Safety Report 10032883 (Version 1)
Quarter: 2014Q1

REPORT INFORMATION
  Report Type: Spontaneous
  Country: US (occurrence: US)
  Receive Date: 20140324
  Receipt Date: 20140324
  Transmission Date: 20141002
  Serious: No
  Sender: FDA-Public Use
  Company Number: US-BAYER-2014-037759

PATIENT
  Age: 63 Year
  Sex: Female
  Weight: 60 kg

DRUGS (13)
  1. CLIMARA [Suspect]
     Indication: HOT FLUSH
     Dosage: UNK UNK, CONT
     Route: 062
     Dates: start: 201307
  2. METOPROLOL [Concomitant]
     Indication: HYPERTENSION
     Dosage: 50 MG, BID
     Route: 048
     Dates: start: 2004
  3. LEVOTHYROXINE [Concomitant]
     Indication: HYPOTHYROIDISM
     Dosage: 37 ?G, QD
     Route: 048
     Dates: start: 1989
  4. LISINOPRIL [Concomitant]
     Indication: HYPERTENSION
     Dosage: 10 MG, QD
     Route: 048
     Dates: start: 2010
  5. TEMAZEPAM [Concomitant]
     Indication: SLEEP DISORDER
     Dosage: 30 MG, QD
     Route: 048
     Dates: start: 2000
  6. CLONAZEPAM [Concomitant]
     Indication: ANXIETY
     Dosage: 1 MG, BID
     Route: 048
     Dates: start: 2006
  7. BUTALBITAL W/ASPIRIN,CAFFEINE [Concomitant]
     Indication: MIGRAINE
     Dosage: UNK UNK, PRN
     Route: 048
     Dates: start: 1994
  8. FLAXSEED OIL [Concomitant]
     Indication: SUPPLEMENTATION THERAPY
     Dosage: 1000 MG, BID
     Route: 048
     Dates: start: 2012
  9. VITAMIN D3 [Concomitant]
     Indication: VITAMIN SUPPLEMENTATION
     Dosage: 1000 IU, BID
     Route: 048
     Dates: start: 2013
  10. KRILL OIL [Concomitant]
     Indication: SUPPLEMENTATION THERAPY
     Dosage: 300 MG, QD
     Route: 048
     Dates: start: 2012
  11. B COMPLEX [B3,B6,B2,B1 HCL] [Concomitant]
     Indication: SUPPLEMENTATION THERAPY
     Dosage: 1 DF, QD
     Route: 048
     Dates: start: 2013
  12. ASPIRIN [Concomitant]
     Indication: SUPPLEMENTATION THERAPY
     Dosage: 81 MG, QD
     Route: 048
     Dates: start: 2013
  13. MELATONIN [Concomitant]
     Dosage: 5 MG, QD
     Route: 048
     Dates: start: 2013

REACTIONS (2)
  - Product adhesion issue [None]
  - Hot flush [Not Recovered/Not Resolved]
